FAERS Safety Report 25919299 (Version 1)
Quarter: 2025Q4

REPORT INFORMATION
  Report Type: Spontaneous
  Country: US (occurrence: None)
  Receive Date: 20251013
  Receipt Date: 20251013
  Transmission Date: 20260117
  Serious: Yes (unspecified)
  Sender: FDA-CTU
  Company Number: None

PATIENT
  Age: 67 Year
  Sex: Male

DRUGS (11)
  1. TEMOZOLOMIDE [Suspect]
     Active Substance: TEMOZOLOMIDE
     Indication: Neuroendocrine tumour
     Dosage: FREQUENCY : DAILY;?
     Route: 048
     Dates: start: 20240522, end: 20250702
  2. ATORVASTATIN [Concomitant]
     Active Substance: ATORVASTATIN
  3. fentanyl 100mcg patch [Concomitant]
  4. fluticasone 50mcg nasal spray [Concomitant]
  5. GABAPENTIN [Concomitant]
     Active Substance: GABAPENTIN
  6. LIDOCAINE [Concomitant]
     Active Substance: LIDOCAINE
  7. LISINOPRIL [Concomitant]
     Active Substance: LISINOPRIL
  8. MIRTAZAPINE [Concomitant]
     Active Substance: MIRTAZAPINE
  9. PANTOPRAZOLE [Concomitant]
     Active Substance: PANTOPRAZOLE
  10. SERTRALINE [Concomitant]
     Active Substance: SERTRALINE HYDROCHLORIDE
  11. multivitamin tablets [Concomitant]

REACTIONS (3)
  - Fatigue [None]
  - Weight decreased [None]
  - Therapy cessation [None]

NARRATIVE: CASE EVENT DATE: 20250702
